FAERS Safety Report 5793110-8 (Version None)
Quarter: 2008Q2

REPORT INFORMATION
  Report Type: 
  Country: None (occurrence: None)
  Receive Date: 20080626
  Receipt Date: 20080626
  Transmission Date: 20081010
  Serious: Yes (Hospitalization)
  Sender: FDA-Public Use
  Company Number: None

PATIENT
  Age: 62 Year
  Sex: Male
  Weight: 65.3 kg

DRUGS (2)
  1. OMEPRAZOLE [Suspect]
     Indication: GASTROOESOPHAGEAL REFLUX DISEASE
     Dosage: 40 MG EVERY DAY PO
     Route: 048
     Dates: start: 20070629, end: 20080519
  2. CIPROFLOXACIN [Suspect]
     Indication: URINARY TRACT INFECTION
     Dosage: 250 MG EVERY BID PO
     Route: 048
     Dates: start: 20080503, end: 20080508

REACTIONS (12)
  - ALCOHOL USE [None]
  - CONFUSIONAL STATE [None]
  - DEHYDRATION [None]
  - DELIRIUM [None]
  - ENCEPHALITIS HERPES [None]
  - ENDOCARDITIS [None]
  - HALLUCINATION [None]
  - HYPONATRAEMIA [None]
  - INCOHERENT [None]
  - MENINGITIS [None]
  - MENTAL STATUS CHANGES [None]
  - URINARY TRACT INFECTION [None]
